FAERS Safety Report 6521549-1 (Version None)
Quarter: 2009Q4

REPORT INFORMATION
  Report Type: 
  Country: None (occurrence: None)
  Receive Date: 20091230
  Receipt Date: 20091216
  Transmission Date: 20100525
  Serious: Yes (Death, Hospitalization, Other)
  Sender: FDA-Public Use
  Company Number: NL-PFIZER INC-2009292177

PATIENT
  Age: 66 Year
  Sex: Male
  Weight: 67.8 kg

DRUGS (5)
  1. SUTENT [Suspect]
     Indication: SMALL CELL LUNG CANCER EXTENSIVE STAGE
     Dosage: 37.5 MG, 1X/DAY
     Route: 048
     Dates: start: 20090916, end: 20091114
  2. PERSANTINE [Suspect]
     Indication: HYPERTENSION
     Dosage: 200 MG, 1X/DAY
     Route: 048
     Dates: start: 20070301, end: 20091029
  3. ASPIRIN [Suspect]
     Indication: ATHEROSCLEROSIS PROPHYLAXIS
     Dosage: 80 MG, 1X/DAY
     Route: 048
     Dates: start: 20070301, end: 20091029
  4. SIMVASTATIN [Concomitant]
     Indication: ATHEROSCLEROSIS PROPHYLAXIS
     Dosage: 40 MG, 1X/DAY
     Route: 048
     Dates: start: 20070301, end: 20091115
  5. METOPROLOL [Concomitant]
     Indication: HYPERTENSION
     Dosage: 50 MG, 1X/DAY
     Route: 048
     Dates: start: 20070301, end: 20091115

REACTIONS (3)
  - HAEMOPTYSIS [None]
  - PNEUMONIA [None]
  - PULMONARY HAEMORRHAGE [None]
